FAERS Safety Report 21230075 (Version 2)
Quarter: 2022Q3

REPORT INFORMATION
  Report Type: Spontaneous
  Country: US (occurrence: US)
  Receive Date: 20220818
  Receipt Date: 20220911
  Transmission Date: 20221027
  Serious: No
  Sender: FDA-Public Use
  Company Number: US-SA-SAC20220816000317

PATIENT
  Age: 79 Year
  Sex: Female

DRUGS (2)
  1. DUPIXENT [Suspect]
     Active Substance: DUPILUMAB
     Indication: Dermatitis atopic
     Dosage: 600 MG, 1X
     Route: 058
     Dates: start: 202002, end: 20200215
  2. DUPIXENT [Suspect]
     Active Substance: DUPILUMAB
     Dosage: 300 MG, QOW
     Route: 058

REACTIONS (9)
  - Abnormal sensation in eye [Unknown]
  - Eye pain [Unknown]
  - Visual impairment [Unknown]
  - Skin disorder [Unknown]
  - Lip exfoliation [Unknown]
  - Ocular hyperaemia [Unknown]
  - Vision blurred [Unknown]
  - Eye swelling [Unknown]
  - Dry eye [Unknown]
